FAERS Safety Report 17359115 (Version 1)
Quarter: 2020Q1

REPORT INFORMATION
  Report Type: Report from Study
  Country: DE (occurrence: DE)
  Receive Date: 20200202
  Receipt Date: 20200202
  Transmission Date: 20200409
  Serious: Yes (Hospitalization)
  Sender: FDA-Public Use
  Company Number: DE-TEVA-2020-DE-1177754

PATIENT
  Sex: Male
  Weight: 95 kg

DRUGS (15)
  1. ABRAXANE [Suspect]
     Active Substance: PACLITAXEL
     Dosage: 100 MILLIGRAM/SQ. METER , 100 MG/M2
     Route: 041
     Dates: start: 20190510, end: 20190524
  2. ASPIRIN. [Concomitant]
     Active Substance: ASPIRIN
     Indication: MYOCARDIAL INFARCTION
     Dosage: 100 MILLIGRAM 1 DAYS
     Route: 048
     Dates: start: 20150629
  3. PIPERACILLIN. [Suspect]
     Active Substance: PIPERACILLIN SODIUM
     Indication: URINARY TRACT INFECTION
     Dosage: 12 MILLIGRAM , 12 MG 1 DAYS
     Route: 041
     Dates: start: 20190525, end: 20190528
  4. ABRAXANE [Suspect]
     Active Substance: PACLITAXEL
     Indication: NON-SMALL CELL LUNG CANCER
     Dosage: 100 MILLIGRAM/SQ. METER , 100 MG/M2
     Route: 041
     Dates: start: 20190605, end: 20190605
  5. SIMVASTATIN. [Concomitant]
     Active Substance: SIMVASTATIN
     Indication: HYPERCHOLESTEROLAEMIA
     Dosage: 20 MILLIGRAM , 20 MG 1 DAYS
     Route: 048
     Dates: start: 20190502
  6. NOVALGIN [Concomitant]
     Indication: PROPHYLAXIS
     Dosage: 500 MILLIGRAM , 500 MG 2 DAYS
     Route: 048
     Dates: start: 20190502
  7. DELIX PROTECT [Concomitant]
     Active Substance: RAMIPRIL
     Indication: HYPERTENSION
     Dosage: 5 MILLIGRAM , 5 MG 1 DAYS
     Route: 048
     Dates: start: 20150629
  8. TILIDIN 50/4 [Concomitant]
     Indication: PROPHYLAXIS
     Dosage: 100 MILLIGRAM , 100 MG 1 DAYS
     Route: 048
     Dates: start: 20190502
  9. TAZOBACTAM [Suspect]
     Active Substance: TAZOBACTAM
     Indication: URINARY TRACT INFECTION
     Dosage: 1.5 GRAM , 1.5 GRAM 1 DAYS
     Route: 041
     Dates: start: 20190525, end: 20190528
  10. AMLODIPINE [Concomitant]
     Active Substance: AMLODIPINE BESYLATE
     Indication: HYPERTENSION
     Dosage: 10 MILLIGRAM , 5 MG 1 DAYS
     Route: 048
     Dates: start: 20150629
  11. PEMBROLIZUMAB. [Suspect]
     Active Substance: PEMBROLIZUMAB
     Indication: PRODUCT USED FOR UNKNOWN INDICATION
     Route: 065
  12. CARBOPLATIN. [Suspect]
     Active Substance: CARBOPLATIN
     Indication: NON-SMALL CELL LUNG CANCER
     Dosage: 2 MG X MIN/ML
     Route: 041
     Dates: start: 20190510, end: 20190619
  13. SORTIS [Concomitant]
     Active Substance: ATORVASTATIN
     Indication: HYPERCHOLESTEROLAEMIA
     Dosage: 10 MILLIGRAM , 10 MG 1 DAYS
     Route: 048
     Dates: start: 20190502
  14. TRAMADOL. [Concomitant]
     Active Substance: TRAMADOL
     Indication: PROPHYLAXIS
     Dosage: 20 GTT
     Route: 048
     Dates: start: 20190502
  15. BISOPROLOL [Concomitant]
     Active Substance: BISOPROLOL
     Indication: HYPERTENSION
     Dosage: 2.5 MILLIGRAM , 2.5 MG 1 DAYS
     Route: 048
     Dates: start: 20150629

REACTIONS (5)
  - Drug eruption [Recovered/Resolved]
  - Asthma [Recovered/Resolved]
  - Chronic obstructive pulmonary disease [Recovered/Resolved]
  - Infection [Recovered/Resolved]
  - Urinary tract infection [Recovered/Resolved]

NARRATIVE: CASE EVENT DATE: 20190525
